FAERS Safety Report 10056317 (Version 1)
Quarter: 2014Q2

REPORT INFORMATION
  Report Type: Spontaneous
  Country: US (occurrence: None)
  Receive Date: 20140401
  Receipt Date: 20140401
  Transmission Date: 20141212
  Serious: Yes (Death)
  Sender: FDA-Public Use
  Company Number: 400525310-AKO-5300

PATIENT
  Age: 75 Year
  Sex: Female
  Weight: 110 kg

DRUGS (1)
  1. AK-FLUOR [Suspect]
     Indication: DIAGNOSTIC PROCEDURE
     Route: 042
     Dates: start: 20140324, end: 20140324

REACTIONS (6)
  - Feeling abnormal [None]
  - Unresponsive to stimuli [None]
  - Clonus [None]
  - Muscle rigidity [None]
  - Hypoxia [None]
  - Pulse absent [None]
